FAERS Safety Report 23971465 (Version 1)
Quarter: 2024Q2

REPORT INFORMATION
  Report Type: Spontaneous
  Country: US (occurrence: None)
  Receive Date: 20240612
  Receipt Date: 20240612
  Transmission Date: 20240716
  Serious: Yes (Death, Hospitalization)
  Sender: FDA-Public Use
  Company Number: None

PATIENT
  Age: 82 Year
  Sex: Female

DRUGS (9)
  1. OFEV [Suspect]
     Active Substance: NINTEDANIB
     Indication: Interstitial lung disease
     Dosage: FREQUENCY : TWICE A DAY;?
     Route: 048
     Dates: start: 20210211
  2. GABAPENTIN [Concomitant]
  3. LORAZEPAM [Concomitant]
  4. ALBUTEROL [Concomitant]
     Active Substance: ALBUTEROL
  5. PANTOPRAZOLE [Concomitant]
  6. PRADAXA [Concomitant]
  7. AMLODIPINE [Concomitant]
     Active Substance: AMLODIPINE BESYLATE
  8. BUPROPION [Concomitant]
     Active Substance: BUPROPION
  9. FLUOXETINE [Concomitant]

REACTIONS (3)
  - Acute respiratory failure [None]
  - Pneumonia [None]
  - Hospice care [None]

NARRATIVE: CASE EVENT DATE: 20240222
